FAERS Safety Report 7866099-5 (Version None)
Quarter: 2011Q4

REPORT INFORMATION
  Report Type: 
  Country: None (occurrence: None)
  Receive Date: 20111028
  Receipt Date: 20110422
  Transmission Date: 20120403
  Serious: No
  Sender: FDA-Public Use
  Company Number: US-GLAXOSMITHKLINE-A0924225A

PATIENT
  Age: 75 Year
  Sex: Male

DRUGS (6)
  1. SPIRONOLACTONE + HYDROCHLOROTHIAZIDE [Concomitant]
  2. VENTOLIN [Concomitant]
  3. CAFFEINE CITRATE [Suspect]
  4. WARFARIN SODIUM [Concomitant]
  5. POTASSIUM CHLORIDE [Concomitant]
  6. ADVAIR DISKUS 100/50 [Suspect]
     Indication: CHRONIC OBSTRUCTIVE PULMONARY DISEASE
     Dosage: 1PUFF TWICE PER DAY
     Route: 055
     Dates: start: 20110101

REACTIONS (3)
  - CONDITION AGGRAVATED [None]
  - TREMOR [None]
  - NERVOUSNESS [None]
